FAERS Safety Report 5131406-3 (Version None)
Quarter: 2006Q4

REPORT INFORMATION
  Report Type: 
  Country: None (occurrence: None)
  Receive Date: 20061020
  Receipt Date: 20061018
  Transmission Date: 20070319
  Serious: Yes (Other)
  Sender: FDA-Public Use
  Company Number: US-GLAXOSMITHKLINE-A0624254A

PATIENT

DRUGS (1)
  1. REQUIP [Suspect]

REACTIONS (2)
  - DRUG DEPENDENCE [None]
  - RESTLESS LEGS SYNDROME [None]
